FAERS Safety Report 21005059 (Version 1)
Quarter: 2022Q2

REPORT INFORMATION
  Report Type: Report from Study
  Country: NL (occurrence: NL)
  Receive Date: 20220624
  Receipt Date: 20220624
  Transmission Date: 20220721
  Serious: Yes (Other)
  Sender: FDA-Public Use
  Company Number: NL-AEGERION-AEGR000568

PATIENT

DRUGS (11)
  1. LOMITAPIDE MESYLATE [Suspect]
     Active Substance: LOMITAPIDE MESYLATE
     Indication: Type IIa hyperlipidaemia
     Dosage: 5 MG, QD
     Route: 048
     Dates: start: 201404, end: 20140511
  2. LOMITAPIDE MESYLATE [Suspect]
     Active Substance: LOMITAPIDE MESYLATE
     Dosage: 10 MG, QD
     Route: 048
     Dates: start: 20140512, end: 20140602
  3. LOMITAPIDE MESYLATE [Suspect]
     Active Substance: LOMITAPIDE MESYLATE
     Dosage: 5 MG, QD
     Route: 048
     Dates: start: 20140624, end: 20140930
  4. METFORMIN [Concomitant]
     Active Substance: METFORMIN HYDROCHLORIDE
     Indication: Type 2 diabetes mellitus
     Dosage: 1 G, BID
  5. OMEPRAZOLE [Concomitant]
     Active Substance: OMEPRAZOLE
     Indication: Prophylaxis
     Dosage: 40 MG, BID
  6. Carbasalaat calcium [Concomitant]
     Indication: Coronary artery disease
     Dosage: 100 MG, QD
  7. METOPROLOL [Concomitant]
     Active Substance: METOPROLOL
     Indication: Coronary artery disease
     Dosage: 100 MG, QD
  8. CIPROFIBRATE [Concomitant]
     Active Substance: CIPROFIBRATE
     Indication: Hyperlipidaemia
     Dosage: 100 MG, BID
  9. QUESTRAN [Concomitant]
     Active Substance: CHOLESTYRAMINE
     Indication: Hyperlipidaemia
     Dosage: 4 G, BID
  10. FEXOFENADINE [Concomitant]
     Active Substance: FEXOFENADINE HYDROCHLORIDE
     Indication: Product used for unknown indication
     Dosage: 180 MG, QD
  11. ZINC [Concomitant]
     Active Substance: ZINC
     Indication: Product used for unknown indication

REACTIONS (4)
  - Aspartate aminotransferase increased [Recovered/Resolved]
  - Alanine aminotransferase increased [Recovered/Resolved]
  - Decreased appetite [Unknown]
  - Abdominal discomfort [Unknown]

NARRATIVE: CASE EVENT DATE: 20140530
